FAERS Safety Report 4557831-7 (Version None)
Quarter: 2005Q1

REPORT INFORMATION
  Report Type: 
  Country: None (occurrence: None)
  Receive Date: 20050118
  Receipt Date: 20050107
  Transmission Date: 20050727
  Serious: Yes (Other)
  Sender: FDA-Public Use
  Company Number: 141100USA

PATIENT
  Age: 55 Year
  Sex: Male

DRUGS (1)
  1. PIMOZIDE [Suspect]
     Indication: MENTAL DISORDER
     Route: 048

REACTIONS (3)
  - MUSCULOSKELETAL STIFFNESS [None]
  - PARKINSON'S DISEASE [None]
  - TREMOR [None]
